FAERS Safety Report 9894109 (Version 1)
Quarter: 2014Q1

REPORT INFORMATION
  Report Type: Spontaneous
  Country: BR (occurrence: BR)
  Receive Date: 20140213
  Receipt Date: 20140213
  Transmission Date: 20141002
  Serious: Yes (Other)
  Sender: FDA-Public Use
  Company Number: BR-PFIZER INC-2014036675

PATIENT
  Age: 74 Year
  Sex: Male

DRUGS (1)
  1. FRONTAL [Suspect]
     Indication: SLEEP DISORDER
     Dosage: 1.5 MG (ONE AND A HALF TABLET OF 1MG) OR 2MG (IF NEEDED) , DAILY
     Route: 048
     Dates: start: 1998

REACTIONS (3)
  - Brain oedema [Unknown]
  - Head injury [Unknown]
  - Off label use [Unknown]
